FAERS Safety Report 7595452-2 (Version None)
Quarter: 2011Q3

REPORT INFORMATION
  Report Type: 
  Country: None (occurrence: None)
  Receive Date: 20110707
  Receipt Date: 20110704
  Transmission Date: 20111222
  Serious: Yes (Hospitalization)
  Sender: FDA-Public Use
  Company Number: BR-ROCHE-787179

PATIENT
  Sex: Male
  Weight: 67 kg

DRUGS (12)
  1. CLONAZEPAM [Suspect]
     Indication: INSOMNIA
     Dosage: FREQUENCY: 1/2/TAB/DAY, START DATE AS REPORTED: MANY YEARS AGO
     Route: 065
  2. OSTEONUTRI [Concomitant]
  3. THEOPHYLLINE [Concomitant]
  4. VENLAFAXINE [Concomitant]
     Dosage: FREQUENCY: IN THE MORNING
  5. SPIRIVA [Concomitant]
  6. VITAMIN B COMPLEX CAP [Concomitant]
  7. BUDESONIDE [Concomitant]
  8. FINASTERIDE [Concomitant]
  9. GABAPENTIN [Concomitant]
  10. DOXAZOSINA [Concomitant]
  11. ALENIA [Concomitant]
  12. SPIRONOLACTONE [Concomitant]

REACTIONS (3)
  - URINARY TRACT INFECTION [None]
  - EMPHYSEMA [None]
  - DRUG INEFFECTIVE [None]
